FAERS Safety Report 16685197 (Version 1)
Quarter: 2019Q3

REPORT INFORMATION
  Report Type: Spontaneous
  Country: BR (occurrence: BR)
  Receive Date: 20190808
  Receipt Date: 20190808
  Transmission Date: 20191004
  Serious: Yes (Other)
  Sender: FDA-Public Use
  Company Number: PHHY2019BR182389

PATIENT
  Sex: Female

DRUGS (2)
  1. GALVUS MET [Suspect]
     Active Substance: METFORMIN HYDROCHLORIDE\VILDAGLIPTIN
     Indication: PRODUCT USED FOR UNKNOWN INDICATION
     Dosage: UNK (CONCENTRATION : 50/500 MG)
     Route: 065
  2. GALVUS MET [Suspect]
     Active Substance: METFORMIN HYDROCHLORIDE\VILDAGLIPTIN
     Dosage: UNK (CONCENTRATION : 50/850 MG)
     Route: 065

REACTIONS (6)
  - Diarrhoea [Unknown]
  - Diverticulitis [Unknown]
  - Gastrointestinal disorder [Unknown]
  - Blood pressure abnormal [Unknown]
  - Diabetes mellitus [Unknown]
  - Colitis [Unknown]
